FAERS Safety Report 9871287 (Version 1)
Quarter: 2014Q1

REPORT INFORMATION
  Report Type: Spontaneous
  Country: AR (occurrence: AR)
  Receive Date: 20140205
  Receipt Date: 20140205
  Transmission Date: 20141002
  Serious: Yes (Other)
  Sender: FDA-Public Use
  Company Number: AR-ROXANE LABORATORIES, INC.-2014-RO-00142RO

PATIENT
  Sex: Male

DRUGS (3)
  1. PREDNISONE [Suspect]
     Indication: PROSTATE CANCER
  2. ABIRATERONE [Suspect]
     Indication: PROSTATE CANCER
  3. DOCETAXEL [Concomitant]

REACTIONS (1)
  - Thrombocytopenia [Unknown]
